FAERS Safety Report 8561118-5 (Version None)
Quarter: 2012Q3

REPORT INFORMATION
  Report Type: 
  Country: None (occurrence: None)
  Receive Date: 20120802
  Receipt Date: 20120724
  Transmission Date: 20120928
  Serious: Yes (Disabling)
  Sender: FDA-Public Use
  Company Number: DE-ASTRAZENECA-2012SE45944

PATIENT
  Sex: Male
  Weight: 81 kg

DRUGS (6)
  1. BISOPROLOL FUMARATE [Concomitant]
     Route: 065
     Dates: start: 20120713
  2. CANDESARTAN CILEXETIL/HYDROCHLOROTHIAZIDE [Suspect]
     Dosage: FORM STRENGTH: CANDESARTAN CILEXETIL/HCT 8/12.5 MG
     Route: 048
     Dates: start: 20120307, end: 20120504
  3. ALLOPURINOL [Concomitant]
     Indication: HYPERURICAEMIA
     Route: 065
  4. BISOPROLOL FUMARATE [Concomitant]
     Route: 065
     Dates: start: 20120508, end: 20120712
  5. CANDESARTAN CILEXETIL [Suspect]
     Indication: HYPERTENSION
     Dates: start: 20120505, end: 20120724
  6. CANDESARTAN CILEXETIL/HYDROCHLOROTHIAZIDE [Suspect]
     Indication: HYPERTENSION
     Dosage: FORM STRENGTH: CANDESARTAN CILEXETIL/HCT 8/12.5 MG, TWO TIMES A DAY
     Route: 048
     Dates: start: 20120224, end: 20120306

REACTIONS (3)
  - HYPERURICAEMIA [None]
  - PAIN IN EXTREMITY [None]
  - OEDEMA PERIPHERAL [None]
